FAERS Safety Report 12715167 (Version 1)
Quarter: 2016Q3

REPORT INFORMATION
  Report Type: Spontaneous
  Country: US (occurrence: US)
  Receive Date: 20160905
  Receipt Date: 20160905
  Transmission Date: 20161109
  Serious: No
  Sender: FDA-Public Use
  Company Number: US-009507513-1608USA011076

PATIENT
  Age: 18 Year
  Sex: Female
  Weight: 99.32 kg

DRUGS (1)
  1. NEXPLANON [Suspect]
     Active Substance: ETONOGESTREL
     Dosage: 68 MG, ONCE
     Route: 059
     Dates: start: 20160805, end: 20160817

REACTIONS (1)
  - Implant site pruritus [Recovering/Resolving]

NARRATIVE: CASE EVENT DATE: 20160808
